FAERS Safety Report 24903296 (Version 1)
Quarter: 2025Q1

REPORT INFORMATION
  Report Type: Spontaneous
  Country: CN (occurrence: CN)
  Receive Date: 20250130
  Receipt Date: 20250130
  Transmission Date: 20250409
  Serious: Yes (Hospitalization)
  Sender: AMGEN
  Company Number: CN-AMGEN-CHNSP2025017445

PATIENT
  Age: 75 Year
  Sex: Male
  Weight: 49 kg

DRUGS (1)
  1. PROLIA [Suspect]
     Active Substance: DENOSUMAB
     Indication: Osteoporosis
     Route: 058
     Dates: start: 20241121, end: 20241121

REACTIONS (1)
  - Muscular weakness [Unknown]

NARRATIVE: CASE EVENT DATE: 20241124
